FAERS Safety Report 6321549-0 (Version None)
Quarter: 2009Q3

REPORT INFORMATION
  Report Type: 
  Country: None (occurrence: None)
  Receive Date: 20090819
  Receipt Date: 20090811
  Transmission Date: 20100115
  Serious: Yes (Hospitalization)
  Sender: FDA-Public Use
  Company Number: FR-11705772

PATIENT
  Age: 3 Month
  Sex: Male

DRUGS (1)
  1. ATROPINRE SULFATE [Suspect]
     Indication: OPHTHALMOLOGICAL EXAMINATION
     Dosage: 1 GTT 8PM, 8AM, NOON; OPHTHALMIC
     Route: 047
     Dates: start: 20090803, end: 20090804

REACTIONS (2)
  - BRONCHOSPASM [None]
  - OXYGEN SATURATION DECREASED [None]
